FAERS Safety Report 24001687 (Version 1)
Quarter: 2024Q2

REPORT INFORMATION
  Report Type: Spontaneous
  Country: US (occurrence: US)
  Receive Date: 20240621
  Receipt Date: 20240621
  Transmission Date: 20240716
  Serious: No
  Sender: FDA-Public Use
  Company Number: US-BIOMARINAP-US-2024-158657

PATIENT

DRUGS (1)
  1. PALYNZIQ [Suspect]
     Active Substance: PEGVALIASE-PQPZ
     Indication: Product used for unknown indication
     Dosage: 2.5 MILLIGRAM, QW
     Route: 058
     Dates: start: 20240516

REACTIONS (5)
  - Injection site reaction [Unknown]
  - Injection site erythema [Unknown]
  - Injection site pruritus [Unknown]
  - Arthralgia [Unknown]
  - Nausea [Recovered/Resolved]

NARRATIVE: CASE EVENT DATE: 20240516
